FAERS Safety Report 8861114 (Version 1)
Quarter: 2012Q4

REPORT INFORMATION
  Report Type: Spontaneous
  Country: US (occurrence: None)
  Receive Date: 20121025
  Receipt Date: 20121025
  Transmission Date: 20130627
  Serious: No
  Sender: FDA-Public Use
  Company Number: None

PATIENT
  Age: 68 Year
  Sex: Male
  Weight: 85 kg

DRUGS (1)
  1. CLINIMIX [Suspect]
     Indication: PANCREATITIS
     Route: 041
     Dates: start: 20121001, end: 20121005

REACTIONS (6)
  - Wrong technique in drug usage process [None]
  - Psychotic disorder [None]
  - Stress [None]
  - Nausea [None]
  - Vomiting [None]
  - Medication error [None]
